FAERS Safety Report 7487897-6 (Version None)
Quarter: 2011Q2

REPORT INFORMATION
  Report Type: 
  Country: None (occurrence: None)
  Receive Date: 20110518
  Receipt Date: 20110511
  Transmission Date: 20111010
  Serious: Yes (Life-Threatening)
  Sender: FDA-Public Use
  Company Number: FR-PFIZER INC-2011105399

PATIENT
  Age: 75 Year
  Sex: Male

DRUGS (7)
  1. REPAGLINIDE [Concomitant]
     Dosage: UNK
  2. GLUCOVANCE [Concomitant]
     Dosage: UNK
  3. GLUCOPHAGE [Concomitant]
     Dosage: UNK
  4. SECTRAL [Suspect]
     Indication: ATRIAL FIBRILLATION
     Dosage: 400 MG, DAILY
     Route: 048
     Dates: start: 20101203, end: 20101203
  5. ASPIRIN [Concomitant]
     Dosage: UNK
  6. CORDARONE [Suspect]
     Indication: ATRIAL FIBRILLATION
     Dosage: 1200 MG, DAILY
     Route: 048
     Dates: start: 20101203, end: 20101203
  7. SIMVASTATIN [Concomitant]
     Dosage: UNK

REACTIONS (4)
  - MULTI-ORGAN FAILURE [None]
  - ATRIOVENTRICULAR BLOCK COMPLETE [None]
  - OVERDOSE [None]
  - CARDIOGENIC SHOCK [None]
